FAERS Safety Report 6463454-5 (Version None)
Quarter: 2009Q4

REPORT INFORMATION
  Report Type: 
  Country: None (occurrence: None)
  Receive Date: 20091201
  Receipt Date: 20090929
  Transmission Date: 20100525
  Serious: Yes (Other)
  Sender: FDA-Public Use
  Company Number: US-AMGEN-QUU366982

PATIENT
  Sex: Male

DRUGS (2)
  1. ENBREL [Suspect]
     Indication: PSORIATIC ARTHROPATHY
  2. UNSPECIFIED ANTIBIOTIC [Suspect]

REACTIONS (5)
  - BRONCHIECTASIS [None]
  - IMMUNOSUPPRESSION [None]
  - PNEUMONIA PRIMARY ATYPICAL [None]
  - PSEUDOMONAS INFECTION [None]
  - RESPIRATORY DISORDER [None]
